FAERS Safety Report 5810550-9 (Version None)
Quarter: 2008Q3

REPORT INFORMATION
  Report Type: 
  Country: None (occurrence: None)
  Receive Date: 20080709
  Receipt Date: 20080624
  Transmission Date: 20090109
  Serious: Yes (Hospitalization)
  Sender: FDA-Public Use
  Company Number: 08-001048

PATIENT
  Age: 66 Year
  Sex: Male

DRUGS (1)
  1. DOVONEX [Suspect]

REACTIONS (1)
  - ANGINA PECTORIS [None]
